FAERS Safety Report 8418481-5 (Version None)
Quarter: 2012Q2

REPORT INFORMATION
  Report Type: 
  Country: None (occurrence: None)
  Receive Date: 20120531
  Receipt Date: 20120518
  Transmission Date: 20120825
  Serious: Yes (Death)
  Sender: FDA-Public Use
  Company Number: 201205000027

PATIENT
  Age: 40 Year
  Sex: Female

DRUGS (1)
  1. INOMAX [Suspect]
     Indication: PULMONARY FIBROSIS
     Dosage: 5 PPM, CONTINUOUS, INHALATION
     Route: 055
     Dates: start: 20120514, end: 20120514

REACTIONS (1)
  - WITHDRAWAL OF LIFE SUPPORT [None]
